FAERS Safety Report 22321571 (Version 1)
Quarter: 2023Q2

REPORT INFORMATION
  Report Type: Spontaneous
  Country: US (occurrence: US)
  Receive Date: 20230515
  Receipt Date: 20230515
  Transmission Date: 20230721
  Serious: Yes (Other)
  Sender: FDA-Public Use
  Company Number: US-JNJFOC-20230515289

PATIENT
  Age: 83 Year
  Sex: Female

DRUGS (2)
  1. TECLISTAMAB [Suspect]
     Active Substance: TECLISTAMAB
     Indication: Product used for unknown indication
     Dosage: TREATMENT WAS NOT PART OF THE CAR-T THERAPY PATHWAY
     Route: 065
  2. TECLISTAMAB [Suspect]
     Active Substance: TECLISTAMAB
     Dosage: CYCLE 2 OF TECLISTAMAB
     Route: 065

REACTIONS (1)
  - Thrombotic thrombocytopenic purpura [Unknown]
